FAERS Safety Report 5910445-6 (Version None)
Quarter: 2008Q4

REPORT INFORMATION
  Report Type: 
  Country: None (occurrence: None)
  Receive Date: 20081006
  Receipt Date: 20081006
  Transmission Date: 20090506
  Serious: No
  Sender: FDA-Public Use
  Company Number: None

PATIENT
  Sex: Male
  Weight: 88.4514 kg

DRUGS (2)
  1. ABILIFY [Suspect]
     Indication: MAJOR DEPRESSION
     Dosage: 2MG DAILY PO
     Route: 048
     Dates: start: 20060630, end: 20081005
  2. DULOXETINE  60MG  ELI LILLY [Suspect]
     Dosage: 120MG DAILY PO
     Route: 048
     Dates: start: 20080601, end: 20081005

REACTIONS (4)
  - DRUG EFFECT INCREASED [None]
  - DRUG INTERACTION [None]
  - HYPERSOMNIA [None]
  - SOMNOLENCE [None]
